FAERS Safety Report 4963811-X (Version None)
Quarter: 2006Q1

REPORT INFORMATION
  Report Type: 
  Country: None (occurrence: None)
  Receive Date: 20060330
  Receipt Date: 20060321
  Transmission Date: 20060701
  Serious: Yes (Other)
  Sender: FDA-Public Use
  Company Number: 2006029053

PATIENT
  Age: 55 Year
  Sex: Male
  Weight: 99.7913 kg

DRUGS (12)
  1. CELEBREX [Suspect]
     Indication: ARTHRITIS
     Dates: start: 20000101
  2. LIPITOR [Suspect]
     Indication: BLOOD CHOLESTEROL
     Dosage: 40 MG (20 MG, DAILY)
     Dates: start: 20041101, end: 20041201
  3. ARTHROTEC [Suspect]
     Indication: ARTHRITIS
     Dates: start: 20050615, end: 20050619
  4. BEXTRA [Suspect]
     Indication: ARTHRITIS
     Dosage: 30 MG (20 MG, 1 IN 1 D)
     Dates: start: 20020101, end: 20041101
  5. ZETIA [Suspect]
     Indication: BLOOD CHOLESTEROL INCREASED
     Dosage: 10 MG (DAILY)
     Dates: start: 20050715, end: 20050816
  6. VIOXX [Suspect]
     Indication: ARTHRITIS
  7. CYTOTEC [Concomitant]
  8. TRICOR [Concomitant]
  9. TYLENOL [Concomitant]
  10. AMBIEN [Concomitant]
  11. VITAMINS (VITAMINS) [Concomitant]
  12. CHONDROITIN/GLUCOSAMINE       (CHONDROITIN, CLUCOSAMINE) [Concomitant]

REACTIONS (4)
  - FLUID RETENTION [None]
  - GASTRIC POLYPS [None]
  - HAEMATOCHEZIA [None]
  - HEPATOCELLULAR DAMAGE [None]
